FAERS Safety Report 17839053 (Version 3)
Quarter: 2020Q3

REPORT INFORMATION
  Report Type: Spontaneous
  Country: ES (occurrence: ES)
  Receive Date: 20200529
  Receipt Date: 20200915
  Transmission Date: 20201103
  Serious: Yes (Life-Threatening, Hospitalization, Other)
  Sender: FDA-Public Use
  Company Number: ES-AUROBINDO-AUR-APL-2020-023968

PATIENT
  Age: 8 Year
  Sex: Male

DRUGS (8)
  1. NOREPINEPHRINE. [Concomitant]
     Active Substance: NOREPINEPHRINE
     Indication: PRODUCT USED FOR UNKNOWN INDICATION
     Dosage: UP TO 0.12 MICROG/KG/MIN
     Route: 065
  2. DOPAMINE [Concomitant]
     Active Substance: DOPAMINE HYDROCHLORIDE
     Indication: PRODUCT USED FOR UNKNOWN INDICATION
     Dosage: UP TO 12 MICROG/KG/MIN
     Route: 065
  3. LEVETIRACETAM. [Suspect]
     Active Substance: LEVETIRACETAM
     Indication: EPILEPSY
     Dosage: UNK, INITIAL DOSE
     Route: 048
  4. LEVETIRACETAM. [Suspect]
     Active Substance: LEVETIRACETAM
     Dosage: UNK
     Route: 048
  5. ACETAMINOPHEN. [Suspect]
     Active Substance: ACETAMINOPHEN
     Indication: FEBRILE INFECTION
  6. DIAZEPAM. [Concomitant]
     Active Substance: DIAZEPAM
     Indication: EPILEPSY
     Dosage: UNK
     Route: 065
  7. ACETAMINOPHEN. [Suspect]
     Active Substance: ACETAMINOPHEN
     Indication: EPILEPSY
     Dosage: UNK
     Route: 048
  8. PARACETAMOL [Concomitant]
     Active Substance: ACETAMINOPHEN
     Indication: EPILEPSY
     Dosage: UNK
     Route: 065

REACTIONS (14)
  - Toxic epidermal necrolysis [Recovered/Resolved]
  - Keratitis [Recovering/Resolving]
  - Stomatitis haemorrhagic [Recovering/Resolving]
  - Disease progression [Unknown]
  - Mucosal erosion [Recovering/Resolving]
  - Hypotension [Unknown]
  - Ulcerative keratitis [Recovering/Resolving]
  - Lip haemorrhage [Not Recovered/Not Resolved]
  - Haemoglobin decreased [Unknown]
  - Conjunctivitis [Not Recovered/Not Resolved]
  - Epistaxis [Unknown]
  - Acute kidney injury [Unknown]
  - Stomatitis [Unknown]
  - Melaena [Unknown]
